FAERS Safety Report 6028961-8 (Version None)
Quarter: 2009Q1

REPORT INFORMATION
  Report Type: 
  Country: None (occurrence: None)
  Receive Date: 20090106
  Receipt Date: 20090105
  Transmission Date: 20090719
  Serious: Yes (Death, Hospitalization, Other)
  Sender: FDA-Public Use
  Company Number: PHHY2009BR00467

PATIENT
  Age: 84 Year
  Sex: Male

DRUGS (3)
  1. FORASEQ [Suspect]
     Indication: BRONCHITIS CHRONIC
     Dosage: ONCE DAILY
  2. FORASEQ [Suspect]
     Indication: CHRONIC OBSTRUCTIVE PULMONARY DISEASE
     Dosage: Q12H
  3. OXYGEN THERAPY [Concomitant]

REACTIONS (9)
  - DYSPNOEA [None]
  - FALL [None]
  - FEMUR FRACTURE [None]
  - GENERAL PHYSICAL HEALTH DETERIORATION [None]
  - HEPATIC NEOPLASM MALIGNANT [None]
  - LUNG NEOPLASM MALIGNANT [None]
  - MULTI-ORGAN FAILURE [None]
  - NODULE [None]
  - SECRETION DISCHARGE [None]
